FAERS Safety Report 6841791-X (Version None)
Quarter: 2010Q3

REPORT INFORMATION
  Report Type: 
  Country: None (occurrence: None)
  Receive Date: 20100709
  Receipt Date: 20100624
  Transmission Date: 20110219
  Serious: Yes (Death)
  Sender: FDA-Public Use
  Company Number: 2010BI021947

PATIENT
  Age: 63 Year
  Sex: Male

DRUGS (8)
  1. ZEVALIN [Suspect]
     Indication: NON-HODGKIN'S LYMPHOMA RECURRENT
     Dosage: 0.4 MCI/KG; 1X; IV
     Route: 042
  2. ZEVALIN [Suspect]
     Indication: STEM CELL TRANSPLANT
     Dosage: 0.4 MCI/KG; 1X; IV
     Route: 042
  3. RITUXIMAB [Concomitant]
  4. FLUDARABINE PHOSPHATE [Concomitant]
  5. THYMOGLOBULIN [Concomitant]
  6. BUSULFAN [Concomitant]
  7. CYCLOSPORINE A [Concomitant]
  8. PREV MEDS [Concomitant]

REACTIONS (2)
  - INFECTION [None]
  - MULTI-ORGAN FAILURE [None]
